FAERS Safety Report 24180164 (Version 2)
Quarter: 2024Q3

REPORT INFORMATION
  Report Type: Report from Study
  Country: CO (occurrence: CO)
  Receive Date: 20240806
  Receipt Date: 20240819
  Transmission Date: 20241017
  Serious: Yes (Hospitalization, Other)
  Sender: NOVARTIS
  Company Number: CO-002147023-NVSC2020CO048631

PATIENT
  Sex: Female
  Weight: 68 kg

DRUGS (1)
  1. TASIGNA [Suspect]
     Active Substance: NILOTINIB
     Indication: Chronic myeloid leukaemia
     Dosage: 800 MG, QD
     Route: 048
     Dates: start: 20140313, end: 20240716

REACTIONS (12)
  - Acute lymphocytic leukaemia [Not Recovered/Not Resolved]
  - Chronic myeloid leukaemia recurrent [Not Recovered/Not Resolved]
  - Headache [Not Recovered/Not Resolved]
  - Discouragement [Not Recovered/Not Resolved]
  - Dizziness [Not Recovered/Not Resolved]
  - Chills [Not Recovered/Not Resolved]
  - Pyrexia [Not Recovered/Not Resolved]
  - Decreased immune responsiveness [Not Recovered/Not Resolved]
  - Unevaluable event [Not Recovered/Not Resolved]
  - Inappropriate schedule of product administration [Unknown]
  - Hypertension [Unknown]
  - Drug delivery system issue [Unknown]
